FAERS Safety Report 11114469 (Version 5)
Quarter: 2015Q3

REPORT INFORMATION
  Report Type: Spontaneous
  Country: HU (occurrence: HU)
  Receive Date: 20150515
  Receipt Date: 20150723
  Transmission Date: 20151125
  Serious: Yes (Death, Hospitalization, Other)
  Sender: FDA-Public Use
  Company Number: HU-AMGEN-HUNSP2015047015

PATIENT
  Age: 59 Year
  Sex: Female

DRUGS (7)
  1. TREXAN                             /00113802/ [Suspect]
     Active Substance: METHOTREXATE SODIUM
     Indication: RHEUMATOID ARTHRITIS
     Dosage: 1X 10 MG, WEEKLY (1 DOSAGE FORM)
     Route: 048
     Dates: start: 2002, end: 20150420
  2. ALENDRONATE [Suspect]
     Active Substance: ALENDRONATE SODIUM
     Indication: PRODUCT USED FOR UNKNOWN INDICATION
     Dosage: UNK
     Route: 065
  3. BRULAMYCIN                         /00304201/ [Suspect]
     Active Substance: TOBRAMYCIN
     Indication: PRODUCT USED FOR UNKNOWN INDICATION
     Dosage: UNK
     Route: 065
  4. HUMA-FOLACID [Concomitant]
     Dosage: 1X 7.5 MG, WEEKLY (1.5 TABLETS)
  5. FLUGALIN [Concomitant]
     Dosage: 100 MG, 1X/DAY
  6. ENBREL [Suspect]
     Active Substance: ETANERCEPT
     Indication: RHEUMATOID ARTHRITIS
     Dosage: 50 MG, WEEKLY (1 DOSAGE FORM)
     Route: 058
     Dates: start: 20100708
  7. METYPRED                           /00049601/ [Concomitant]
     Active Substance: METHYLPREDNISOLONE
     Dosage: 2 MG, EVERY OTHER DAY

REACTIONS (23)
  - Pain in extremity [Unknown]
  - Arthralgia [Unknown]
  - Ocular hyperaemia [Unknown]
  - Pulmonary oedema [Fatal]
  - Gastroenteritis [Unknown]
  - Musculoskeletal pain [Unknown]
  - Peripheral swelling [Unknown]
  - Neoplasm malignant [Fatal]
  - Intracranial pressure increased [Fatal]
  - Cerebral haemorrhage [Fatal]
  - Joint range of motion decreased [Unknown]
  - Joint swelling [Unknown]
  - Diarrhoea [Unknown]
  - Joint swelling [Unknown]
  - Erythema [Unknown]
  - Abdominal symptom [Not Recovered/Not Resolved]
  - Hepatorenal failure [Fatal]
  - Dyspepsia [Unknown]
  - Malaise [Not Recovered/Not Resolved]
  - Abdominal pain upper [Unknown]
  - Back pain [Unknown]
  - Acute myelomonocytic leukaemia [Fatal]
  - Pyrexia [Not Recovered/Not Resolved]

NARRATIVE: CASE EVENT DATE: 20100316
